FAERS Safety Report 6538167-1 (Version None)
Quarter: 2010Q1

REPORT INFORMATION
  Report Type: 
  Country: None (occurrence: None)
  Receive Date: 20100114
  Receipt Date: 20100111
  Transmission Date: 20100710
  Serious: Yes (Death)
  Sender: FDA-Public Use
  Company Number: PHEH2010US00643

PATIENT
  Sex: Female

DRUGS (11)
  1. GLEEVEC [Suspect]
     Indication: MYELOID LEUKAEMIA
     Dosage: 600 MG, QD
     Route: 048
     Dates: start: 20091215
  2. PRAVASTATIN [Concomitant]
  3. ACYCLOVIR [Concomitant]
  4. ONDANSETRON [Concomitant]
  5. ZOLPIDEM [Concomitant]
  6. OXYCODONE [Concomitant]
  7. BUPROPION HCL [Concomitant]
  8. LIPITOR [Concomitant]
  9. RAMIPRIL [Concomitant]
  10. METFORMIN [Concomitant]
  11. TRICOR [Concomitant]

REACTIONS (1)
  - DEATH [None]
